FAERS Safety Report 16192744 (Version 1)
Quarter: 2019Q2

REPORT INFORMATION
  Report Type: Other
  Country: FR (occurrence: FR)
  Receive Date: 20190412
  Receipt Date: 20190412
  Transmission Date: 20190711
  Serious: Yes (Hospitalization)
  Sender: FDA-Public Use
  Company Number: FR-SERVIER-S19003315

PATIENT

DRUGS (5)
  1. DECTANCYL [Concomitant]
     Active Substance: DEXAMETHASONE
     Indication: B-CELL TYPE ACUTE LEUKAEMIA
     Dosage: 12 MG AT D1 AND D21
     Route: 048
     Dates: end: 20190314
  2. IMATINIB TEVA [Concomitant]
     Active Substance: IMATINIB
     Indication: B-CELL TYPE ACUTE LEUKAEMIA
     Dosage: 400 MG, UNK
     Route: 048
     Dates: start: 20180907, end: 20190314
  3. ONCASPAR [Suspect]
     Active Substance: PEGASPARGASE
     Indication: B-CELL TYPE ACUTE LEUKAEMIA
     Dosage: 1200 IU, UNK
     Route: 042
     Dates: start: 20190301
  4. VINCRISTINE HOSPIRA [Suspect]
     Active Substance: VINCRISTINE
     Indication: B-CELL TYPE ACUTE LEUKAEMIA
     Dosage: 1.8 MG, UNK
     Route: 040
     Dates: start: 20190301, end: 20190308
  5. DOXORUBICINE TEVA [Suspect]
     Active Substance: DOXORUBICIN
     Indication: B-CELL TYPE ACUTE LEUKAEMIA
     Dosage: 30 MG, UNK
     Route: 041
     Dates: start: 20190301, end: 20190308

REACTIONS (2)
  - Coagulopathy [Recovered/Resolved]
  - Hepatocellular injury [Recovering/Resolving]

NARRATIVE: CASE EVENT DATE: 20190312
